FAERS Safety Report 20336144 (Version 5)
Quarter: 2022Q2

REPORT INFORMATION
  Report Type: Report from Study
  Country: US (occurrence: US)
  Receive Date: 20220114
  Receipt Date: 20220531
  Transmission Date: 20220720
  Serious: Yes (Hospitalization)
  Sender: FDA-Public Use
  Company Number: US-TAKEDA-2022TUS002109

PATIENT
  Age: 71 Year
  Sex: Female
  Weight: 76.2 kg

DRUGS (2)
  1. IXAZOMIB [Suspect]
     Active Substance: IXAZOMIB
     Indication: Mantle cell lymphoma
     Dosage: 4 MILLIGRAM
     Route: 065
     Dates: start: 20210922, end: 20220109
  2. IBRUTINIB [Suspect]
     Active Substance: IBRUTINIB
     Indication: Mantle cell lymphoma
     Dosage: 560 MILLIGRAM, QD
     Route: 065
     Dates: start: 20210922, end: 20220109

REACTIONS (2)
  - Clostridium difficile infection [Recovered/Resolved]
  - Atrial fibrillation [Recovered/Resolved]

NARRATIVE: CASE EVENT DATE: 20220109
